FAERS Safety Report 14328401 (Version 3)
Quarter: 2018Q1

REPORT INFORMATION
  Report Type: Spontaneous
  Country: US (occurrence: US)
  Receive Date: 20171227
  Receipt Date: 20180110
  Transmission Date: 20180509
  Serious: No
  Sender: FDA-Public Use
  Company Number: US-PFIZER INC-2017548327

PATIENT
  Age: 41 Year
  Sex: Female
  Weight: 60.32 kg

DRUGS (3)
  1. DESVENLAFAXINE SUCCINATE MONOHYDRATE [Suspect]
     Active Substance: DESVENLAFAXINE SUCCINATE
     Indication: DEPRESSION
     Dosage: UNK [SPLIT THE PRISTIQ AND TAKE HALF]
  2. DESVENLAFAXINE SUCCINATE MONOHYDRATE [Suspect]
     Active Substance: DESVENLAFAXINE SUCCINATE
     Dosage: 12.5 MG, ONCE A DAY (25MG TABLET, TOOK HALF A TABLET FOR A TOTAL OF 12.5MG
     Route: 048
     Dates: start: 20171221
  3. LEVOTHYROXINE. [Concomitant]
     Active Substance: LEVOTHYROXINE
     Indication: HYPOTHYROIDISM
     Dosage: 50 UG, 1X/DAY (ONCE DAILY)
     Route: 048

REACTIONS (5)
  - Diarrhoea [Recovered/Resolved]
  - Drug prescribing error [Unknown]
  - Muscle spasms [Recovered/Resolved]
  - Abdominal discomfort [Unknown]
  - Nausea [Recovered/Resolved]

NARRATIVE: CASE EVENT DATE: 20171222
